FAERS Safety Report 24016900 (Version 1)
Quarter: 2024Q2

REPORT INFORMATION
  Report Type: Spontaneous
  Country: US (occurrence: US)
  Receive Date: 20240626
  Receipt Date: 20240626
  Transmission Date: 20240716
  Serious: No
  Sender: FDA-Public Use
  Company Number: US-Merz Pharmaceuticals GmbH-24-01855

PATIENT
  Age: 57 Year
  Sex: Female

DRUGS (2)
  1. XEOMIN [Suspect]
     Active Substance: INCOBOTULINUMTOXINA
     Indication: Back disorder
     Dates: start: 20240509, end: 20240509
  2. BOTOX [Concomitant]
     Active Substance: ONABOTULINUMTOXINA
     Indication: Back disorder

REACTIONS (2)
  - Injection site muscle weakness [Unknown]
  - Off label use [Unknown]

NARRATIVE: CASE EVENT DATE: 20240501
